FAERS Safety Report 7540921-4 (Version None)
Quarter: 2011Q2

REPORT INFORMATION
  Report Type: 
  Country: None (occurrence: None)
  Receive Date: 20110610
  Receipt Date: 20110530
  Transmission Date: 20111010
  Serious: Yes (Other)
  Sender: FDA-Public Use
  Company Number: SE-JNJFOC-20110600294

PATIENT
  Age: 32 Year
  Sex: Female

DRUGS (2)
  1. SULFASALAZINE [Concomitant]
  2. SIMPONI [Suspect]
     Indication: SPONDYLITIS
     Route: 058

REACTIONS (2)
  - VISION BLURRED [None]
  - EYE DISORDER [None]
